FAERS Safety Report 8395942-9 (Version None)
Quarter: 2012Q2

REPORT INFORMATION
  Report Type: 
  Country: None (occurrence: None)
  Receive Date: 20120530
  Receipt Date: 20120523
  Transmission Date: 20120825
  Serious: Yes (Hospitalization, Other)
  Sender: FDA-Public Use
  Company Number: PHHY2012MX045428

PATIENT
  Sex: Male

DRUGS (1)
  1. DIOVAN HCT [Suspect]
     Indication: HYPERTENSION
     Dosage: 1 DF (160 MG VALS AND 12.5 MG HYDRO) DAILY
     Dates: start: 20120101

REACTIONS (5)
  - DIARRHOEA [None]
  - RENAL DISORDER [None]
  - INFARCTION [None]
  - VOMITING [None]
  - BLOOD GLUCOSE INCREASED [None]
